FAERS Safety Report 5978732-3 (Version None)
Quarter: 2008Q4

REPORT INFORMATION
  Report Type: 
  Country: None (occurrence: None)
  Receive Date: 20081126
  Receipt Date: 20081117
  Transmission Date: 20090506
  Serious: Yes (Death, Hospitalization)
  Sender: FDA-Public Use
  Company Number: 2007-02449

PATIENT
  Age: 80 Year
  Sex: Male
  Weight: 75 kg

DRUGS (14)
  1. VELCADE [Suspect]
     Indication: MULTIPLE MYELOMA
     Dosage: 1.00 MG/M2, INTRAVENOUS
     Route: 042
     Dates: start: 20070521
  2. DILUTOL (TORASEMIDE) [Concomitant]
  3. NITRODERM [Concomitant]
  4. UROLOSIN (TAMSULOSIN HYDROCHLORIDE) [Concomitant]
  5. PLAVIX [Concomitant]
  6. CALCIUM SANDOZ FORTE D (COLECALCIFEROL, CALCIUM GLUCEPTATE, CALCIUM CA [Concomitant]
  7. OMEPRAZOLE [Concomitant]
  8. ALLOPURINOL [Concomitant]
  9. VALACYCLOVIR [Concomitant]
  10. CARVEDILOL [Concomitant]
  11. FERROSANOL [Concomitant]
  12. ENALAPRIL MALEATE [Concomitant]
  13. DURAGESIC-100 [Concomitant]
  14. EPREX [Concomitant]

REACTIONS (2)
  - DISEASE PROGRESSION [None]
  - PHLEBITIS [None]
